FAERS Safety Report 7601238-2 (Version None)
Quarter: 2011Q3

REPORT INFORMATION
  Report Type: 
  Country: None (occurrence: None)
  Receive Date: 20110711
  Receipt Date: 20110706
  Transmission Date: 20111222
  Serious: Yes (Death)
  Sender: FDA-Public Use
  Company Number: GB-ASTRAZENECA-2011SE40476

PATIENT
  Age: 52 Year
  Sex: Female

DRUGS (4)
  1. ALCOHOL [Suspect]
  2. DIHYDROCODEINE [Suspect]
  3. QUETIAPINE [Suspect]
     Route: 048
  4. DIAZEPAM [Suspect]

REACTIONS (2)
  - ALCOHOL POISONING [None]
  - TOXICITY TO VARIOUS AGENTS [None]
